FAERS Safety Report 8223980-5 (Version None)
Quarter: 2012Q1

REPORT INFORMATION
  Report Type: 
  Country: None (occurrence: None)
  Receive Date: 20120321
  Receipt Date: 20120315
  Transmission Date: 20120608
  Serious: Yes (Death, Hospitalization)
  Sender: FDA-Public Use
  Company Number: PHHY2012EC023200

PATIENT
  Sex: Male

DRUGS (2)
  1. STALEVO 100 [Suspect]
     Indication: PARKINSON'S DISEASE
     Dosage: 200MG/100MG/25MG, 1 TABLET DAILY
     Route: 048
     Dates: start: 20110315
  2. EXELON [Concomitant]
     Dosage: 1 TABLET DAILY
     Dates: start: 20101126

REACTIONS (6)
  - PNEUMONIA [None]
  - CYANOSIS [None]
  - OEDEMA PERIPHERAL [None]
  - COUGH [None]
  - DYSPNOEA [None]
  - GENERAL PHYSICAL HEALTH DETERIORATION [None]
